FAERS Safety Report 23400616 (Version 4)
Quarter: 2024Q1

REPORT INFORMATION
  Report Type: Report from Study
  Country: ZA (occurrence: ZA)
  Receive Date: 20240115
  Receipt Date: 20240209
  Transmission Date: 20240410
  Serious: Yes (Other)
  Sender: FDA-Public Use
  Company Number: ZA-002147023-NVSC2023ZA081425

PATIENT
  Age: 38 Year
  Sex: Male

DRUGS (3)
  1. OFATUMUMAB [Suspect]
     Active Substance: OFATUMUMAB
     Indication: Multiple sclerosis
     Dosage: 20 MG, QW (PATIENT HAS JUST STARTED WITH HIS LOADING DOSE)
     Route: 058
     Dates: start: 20230405
  2. OFATUMUMAB [Suspect]
     Active Substance: OFATUMUMAB
     Dosage: 20 MG, QMO
     Route: 058
  3. OFATUMUMAB [Suspect]
     Active Substance: OFATUMUMAB
     Dosage: 20 MG, QMO
     Route: 058

REACTIONS (19)
  - Vertigo [Unknown]
  - Tremor [Unknown]
  - Depressed level of consciousness [Unknown]
  - Balance disorder [Unknown]
  - Hyperreflexia [Unknown]
  - Rash erythematous [Unknown]
  - Nasal congestion [Unknown]
  - Discomfort [Unknown]
  - Nausea [Recovered/Resolved]
  - Dizziness [Recovered/Resolved]
  - Nystagmus [Recovering/Resolving]
  - Anisocoria [Recovering/Resolving]
  - Rash [Unknown]
  - Headache [Unknown]
  - Rhinitis [Unknown]
  - Rhinorrhoea [Unknown]
  - Sinusitis [Unknown]
  - Stress [Recovered/Resolved]
  - Skin lesion [Recovered/Resolved]

NARRATIVE: CASE EVENT DATE: 20230405
